FAERS Safety Report 9770940 (Version 1)
Quarter: 2013Q4

REPORT INFORMATION
  Report Type: Spontaneous
  Country: FR (occurrence: FR)
  Receive Date: 20131218
  Receipt Date: 20131218
  Transmission Date: 20140711
  Serious: Yes (Hospitalization, Other)
  Sender: FDA-Public Use
  Company Number: FR-PFIZER INC-2013355016

PATIENT
  Age: 82 Year
  Sex: Female

DRUGS (4)
  1. TAHOR [Suspect]
     Dosage: 80 MG, DAILY
     Route: 048
     Dates: end: 20131017
  2. ADENURIC [Suspect]
     Dosage: 80 MG, UNK
     Dates: end: 20131021
  3. NOROXINE [Suspect]
     Indication: URINARY TRACT INFECTION
     Dosage: 400 MG, DAILY
     Route: 048
     Dates: start: 20131008, end: 20131015
  4. AUGMENTIN [Suspect]
     Indication: URINARY TRACT INFECTION
     Dosage: UNK
     Route: 048
     Dates: start: 20131008, end: 20131015

REACTIONS (5)
  - Rhabdomyolysis [Recovered/Resolved]
  - Blood creatine phosphokinase MB increased [Unknown]
  - Glomerular filtration rate decreased [Unknown]
  - Myoglobin blood increased [Unknown]
  - Blood creatine phosphokinase increased [Unknown]
